FAERS Safety Report 21808186 (Version 2)
Quarter: 2023Q1

REPORT INFORMATION
  Report Type: Report from Study
  Country: US (occurrence: US)
  Receive Date: 20230103
  Receipt Date: 20230103
  Transmission Date: 20230418
  Serious: No
  Sender: FDA-Public Use
  Company Number: US-BRISTOL-MYERS SQUIBB COMPANY-2023-000610

PATIENT
  Age: 63 Year
  Sex: Male

DRUGS (1)
  1. ORENCIA [Suspect]
     Active Substance: ABATACEPT
     Indication: Product used for unknown indication
     Dosage: DOSE : UNAVAILABLE;     FREQ : WEEKLY
     Route: 058

REACTIONS (2)
  - Nasopharyngitis [Unknown]
  - Cough [Unknown]

NARRATIVE: CASE EVENT DATE: 20221230
